FAERS Safety Report 12802182 (Version 1)
Quarter: 2016Q3

REPORT INFORMATION
  Report Type: Spontaneous
  Country: US (occurrence: US)
  Receive Date: 20160930
  Receipt Date: 20160930
  Transmission Date: 20161109
  Serious: Yes (Death)
  Sender: FDA-Public Use
  Company Number: None

PATIENT
  Age: 61 Year
  Sex: Female

DRUGS (2)
  1. ENBREL [Suspect]
     Active Substance: ETANERCEPT
     Indication: RHEUMATOID ARTHRITIS
     Route: 058
     Dates: start: 20141016, end: 20160925
  2. METHOTREXATE 2.5MG TAB [Suspect]
     Active Substance: METHOTREXATE
     Indication: RHEUMATOID ARTHRITIS
     Dosage: 2.5MG 8 TABS QWK ORAL
     Route: 048
     Dates: start: 20141016, end: 20160925

REACTIONS (2)
  - Death [None]
  - Procedural complication [None]

NARRATIVE: CASE EVENT DATE: 201609
